FAERS Safety Report 7581095-3 (Version None)
Quarter: 2011Q2

REPORT INFORMATION
  Report Type: 
  Country: None (occurrence: None)
  Receive Date: 20110610
  Receipt Date: 20110408
  Transmission Date: 20111010
  Serious: Yes (Other)
  Sender: FDA-Public Use
  Company Number: 2011028298

PATIENT
  Age: 74 Year
  Sex: Female
  Weight: 65.7716 kg

DRUGS (24)
  1. ALBUTEROL [Concomitant]
  2. SINGULAIR [Concomitant]
  3. MYSOLINE [Concomitant]
  4. HIZENTRA [Suspect]
  5. LASIX [Concomitant]
  6. TIAZAC [Concomitant]
  7. IPRATROPIUM BROMIDE [Concomitant]
  8. COUMADIN [Concomitant]
  9. HIZENTRA [Suspect]
  10. ZOCOR [Concomitant]
  11. FLONASE [Concomitant]
  12. ADVAIR HFA [Concomitant]
  13. MIRALAX [Concomitant]
  14. HIZENTRA [Suspect]
     Indication: IMMUNODEFICIENCY COMMON VARIABLE
     Dosage: 8 G 1X/WEEK, INFUSED 40 ML OVER 1 HR 34 MINUTES, SUBCUTANEOUS,
     Route: 058
     Dates: start: 20110501
  15. HIZENTRA [Suspect]
     Indication: IMMUNODEFICIENCY COMMON VARIABLE
     Dosage: 8 G 1X/WEEK, INFUSED 40 ML OVER 1 HR 34 MINUTES, SUBCUTANEOUS,
     Route: 058
     Dates: start: 20110501
  16. HIZENTRA [Suspect]
     Indication: IMMUNODEFICIENCY COMMON VARIABLE
     Dosage: 8 G 1X/WEEK, INFUSED 40 ML OVER 1 HR 34 MINUTES, SUBCUTANEOUS,
     Route: 058
     Dates: start: 20110406
  17. HIZENTRA [Suspect]
     Indication: IMMUNODEFICIENCY COMMON VARIABLE
     Dosage: 8 G 1X/WEEK, INFUSED 40 ML OVER 1 HR 34 MINUTES, SUBCUTANEOUS,
     Route: 058
     Dates: start: 20110406
  18. HIZENTRA [Suspect]
     Indication: IMMUNODEFICIENCY COMMON VARIABLE
     Dosage: 8 G 1X/WEEK, INFUSED 40 ML OVER 1 HR 34 MINUTES, SUBCUTANEOUS,
     Route: 058
     Dates: start: 20110501
  19. HIZENTRA [Suspect]
  20. CALCIUM (CALCIUM) [Concomitant]
  21. ACETAMINOPHEN [Concomitant]
  22. NEXIUM [Concomitant]
  23. POTASSIUM CHLORIDE [Concomitant]
  24. PULMOZYME [Concomitant]

REACTIONS (4)
  - INFUSION SITE ERYTHEMA [None]
  - UPPER RESPIRATORY FUNGAL INFECTION [None]
  - SINUS DISORDER [None]
  - INFUSION SITE PRURITUS [None]
